FAERS Safety Report 20741997 (Version 2)
Quarter: 2022Q2

REPORT INFORMATION
  Report Type: Spontaneous
  Country: US (occurrence: None)
  Receive Date: 20220423
  Receipt Date: 20220526
  Transmission Date: 20220721
  Serious: No
  Sender: FDA-Public Use
  Company Number: 2022A153581

PATIENT
  Age: 58 Year
  Sex: Male
  Weight: 107.5 kg

DRUGS (1)
  1. BYDUREON BCISE [Suspect]
     Active Substance: EXENATIDE
     Indication: Diabetes mellitus
     Route: 058
     Dates: start: 20220415

REACTIONS (3)
  - Incorrect dose administered by device [Unknown]
  - Sciatica [Unknown]
  - Device leakage [Unknown]

NARRATIVE: CASE EVENT DATE: 20220415
